FAERS Safety Report 11473546 (Version 1)
Quarter: 2015Q3

REPORT INFORMATION
  Report Type: Spontaneous
  Country: US (occurrence: None)
  Receive Date: 20150902
  Receipt Date: 20150902
  Transmission Date: 20151125
  Serious: Yes (Hospitalization)
  Sender: FDA-Public Use
  Company Number: 1000075035

PATIENT
  Age: 37 Year
  Sex: Female
  Weight: 60 kg

DRUGS (8)
  1. WELLBUTRIN [Concomitant]
     Active Substance: BUPROPION HYDROCHLORIDE
  2. MOTRIN (IBUPROFEN) (IBUPROFEN) [Concomitant]
  3. HYDROCHLOROTHIAZIDE. [Concomitant]
     Active Substance: HYDROCHLOROTHIAZIDE
  4. SUNITINIB MALATE (SUNITINIB MALATE) (SUNITINIB MALATE) [Concomitant]
  5. UREA. [Concomitant]
     Active Substance: UREA
  6. RUSSIAN GINSENG (ELEUTHEROCOCCUS SENTICOSUS) (ELEUTHEROCOCCUS SENTICOSUS) [Concomitant]
  7. VALIUM (DIAZEPAM) (DIAZEPAM) [Concomitant]
  8. CITALOPRAM [Suspect]
     Active Substance: CITALOPRAM HYDROBROMIDE
     Indication: ANXIETY
     Route: 048
     Dates: start: 20101222, end: 20110505

REACTIONS (1)
  - Anxiety [None]

NARRATIVE: CASE EVENT DATE: 2011
